FAERS Safety Report 20078858 (Version 3)
Quarter: 2021Q4

REPORT INFORMATION
  Report Type: Report from Study
  Country: AU (occurrence: None)
  Receive Date: 20211117
  Receipt Date: 20211127
  Transmission Date: 20220304
  Serious: Yes (Other)
  Sender: FDA-Public Use
  Company Number: AU-ROCHE-2953471

PATIENT
  Age: 52 Year
  Weight: 73.4 kg

DRUGS (2)
  1. OBINUTUZUMAB [Suspect]
     Active Substance: OBINUTUZUMAB
     Indication: Follicular lymphoma
     Dosage: ON 05/NOV/2021 LAST DOSE OF OBINUTUZUMAB WAS GIVEN PRIOR TO AE
     Route: 042
     Dates: start: 20211028
  2. ATEZOLIZUMAB [Suspect]
     Active Substance: ATEZOLIZUMAB
     Indication: Follicular lymphoma
     Dosage: ON 28/OCT/2021 LAST DOSE OF ATEZOLIZUMAB GIVEN PRIOR TO AE
     Route: 041
     Dates: start: 20211028

REACTIONS (1)
  - Pyrexia [Unknown]

NARRATIVE: CASE EVENT DATE: 20211105
